FAERS Safety Report 9354848 (Version 1)
Quarter: 2013Q2

REPORT INFORMATION
  Report Type: Spontaneous
  Country: US (occurrence: None)
  Receive Date: 20130618
  Receipt Date: 20130618
  Transmission Date: 20140414
  Serious: Yes (Life-Threatening)
  Sender: FDA-Public Use
  Company Number: None

PATIENT
  Age: 23 Year
  Sex: Female

DRUGS (2)
  1. CEFTRIAXONE [Suspect]
     Indication: SEXUALLY TRANSMITTED DISEASE
     Route: 030
     Dates: start: 20130616
  2. AZITHROMYCIN [Suspect]
     Indication: SEXUALLY TRANSMITTED DISEASE
     Route: 048
     Dates: start: 20130616

REACTIONS (4)
  - Dizziness [None]
  - Dizziness [None]
  - Syncope [None]
  - Respiratory disorder [None]
